FAERS Safety Report 10238135 (Version 3)
Quarter: 2014Q3

REPORT INFORMATION
  Report Type: Report from Study
  Country: JP (occurrence: JP)
  Receive Date: 20140616
  Receipt Date: 20140808
  Transmission Date: 20150326
  Serious: Yes (Hospitalization, Other)
  Sender: FDA-Public Use
  Company Number: PHHY2014JP029166

PATIENT
  Age: 60 Year
  Sex: Female
  Weight: 51 kg

DRUGS (21)
  1. NEORAL [Suspect]
     Active Substance: CYCLOSPORINE
     Dosage: 100 MG, DAILY
     Route: 048
     Dates: start: 20121218, end: 20121227
  2. NEORAL [Suspect]
     Active Substance: CYCLOSPORINE
     Dosage: 150 MG, DAILY
     Route: 048
     Dates: start: 20130219, end: 20130311
  3. ICL670A [Suspect]
     Active Substance: DEFERASIROX
     Indication: IRON OVERLOAD
     Dosage: 1000 MG, DAILY
     Route: 048
     Dates: start: 20100423, end: 20100520
  4. NEORAL [Suspect]
     Active Substance: CYCLOSPORINE
     Dosage: 50 MG, DAILY
     Route: 048
     Dates: start: 20121228, end: 20130124
  5. ICL670A [Suspect]
     Active Substance: DEFERASIROX
     Dosage: 500 MG, DAILY
     Route: 048
     Dates: start: 20100521, end: 20100701
  6. NEORAL [Suspect]
     Active Substance: CYCLOSPORINE
     Dosage: 100 MG, DAILY
     Route: 048
     Dates: start: 20130125, end: 20130218
  7. RED CELLS CONCENTRATES-LEUKOCYTES REDUCED [Concomitant]
     Dosage: 2 U, UNK
     Dates: start: 20140213
  8. NEORAL [Suspect]
     Active Substance: CYCLOSPORINE
     Dosage: 150 MG, DAILY
     Route: 048
     Dates: start: 20101007, end: 20101021
  9. NEORAL [Suspect]
     Active Substance: CYCLOSPORINE
     Dosage: 200 MG, DAILY
     Route: 048
     Dates: start: 20101022, end: 20121217
  10. RED CELLS CONCENTRATES-LEUKOCYTES REDUCED [Concomitant]
     Dosage: 2 U, EVERY 8 WEEKS
     Dates: start: 20101022, end: 20120905
  11. RED CELLS CONCENTRATES-LEUKOCYTES REDUCED [Concomitant]
     Dosage: 2 U, PER TIME
     Dates: start: 20130601, end: 20130630
  12. RED CELLS CONCENTRATES-LEUKOCYTES REDUCED [Concomitant]
     Dosage: 4 U, UNK
     Dates: start: 20140303
  13. RED CELLS CONCENTRATES-LEUKOCYTES REDUCED [Concomitant]
     Dosage: 2 U, PER MONTH
     Dates: start: 20140306, end: 20140421
  14. MAGLAX [Concomitant]
     Active Substance: MAGNESIUM OXIDE
     Indication: PROPHYLAXIS
     Dosage: 1.98 G, UNK
     Route: 048
     Dates: start: 20130613, end: 20140421
  15. ICL670A [Suspect]
     Active Substance: DEFERASIROX
     Dosage: 125 MG, DAILY
     Route: 048
     Dates: start: 20100910
  16. NEORAL [Suspect]
     Active Substance: CYCLOSPORINE
     Indication: MYELODYSPLASTIC SYNDROME
     Dosage: 200 MG, DAILY
     Route: 048
     Dates: start: 20100423, end: 20101006
  17. ICL670A [Suspect]
     Active Substance: DEFERASIROX
     Dosage: 250 MG, DAILY
     Route: 048
     Dates: start: 20100702, end: 20100909
  18. NEORAL [Suspect]
     Active Substance: CYCLOSPORINE
     Dosage: 200 MG, DAILY
     Route: 048
     Dates: start: 20130312, end: 20140421
  19. RED CELLS CONCENTRATES-LEUKOCYTES REDUCED [Concomitant]
     Dosage: 2 U, TWICE PER MONTH
     Dates: start: 20130422, end: 20130531
  20. RED CELLS CONCENTRATES-LEUKOCYTES REDUCED [Concomitant]
     Dosage: 2 U, EVERY 4 WEEKS
     Dates: start: 20120906, end: 20130421
  21. RED CELLS CONCENTRATES-LEUKOCYTES REDUCED [Concomitant]
     Dosage: 2 U, 2 UNITS TWICE PER MONTH
     Dates: start: 20130701, end: 20140131

REACTIONS (5)
  - Back pain [Unknown]
  - Blood pressure increased [Recovered/Resolved]
  - Abdominal pain upper [Unknown]
  - Liver disorder [Recovering/Resolving]
  - Gastrointestinal haemorrhage [Recovered/Resolved]

NARRATIVE: CASE EVENT DATE: 20121206
